FAERS Safety Report 17000366 (Version 2)
Quarter: 2020Q2

REPORT INFORMATION
  Report Type: Report from Study
  Country: US (occurrence: US)
  Receive Date: 20191106
  Receipt Date: 20200501
  Transmission Date: 20200713
  Serious: Yes (Hospitalization)
  Sender: FDA-Public Use
  Company Number: US-CELGENEUS-USA-20191011639

PATIENT
  Sex: Female
  Weight: 81.8 kg

DRUGS (9)
  1. POMALYST [Suspect]
     Active Substance: POMALIDOMIDE
     Dosage: 63 MILLIGRAM
     Route: 048
     Dates: start: 20190830, end: 20190919
  2. DEXAMETHASONE. [Suspect]
     Active Substance: DEXAMETHASONE
     Dosage: 0 MILLIGRAM
     Route: 065
     Dates: start: 20190830
  3. POMALYST [Suspect]
     Active Substance: POMALIDOMIDE
     Indication: PLASMA CELL MYELOMA
     Dosage: 63 MILLIGRAM
     Route: 048
     Dates: start: 20180815
  4. MLN9708 [Suspect]
     Active Substance: IXAZOMIB
     Indication: PLASMA CELL MYELOMA
     Dosage: 12 MILLIGRAM
     Route: 065
     Dates: start: 20180815
  5. MLN9708 [Suspect]
     Active Substance: IXAZOMIB
     Dosage: 12 MILLIGRAM
     Route: 065
     Dates: start: 20190830, end: 20190913
  6. DEXAMETHASONE. [Suspect]
     Active Substance: DEXAMETHASONE
     Indication: PLASMA CELL MYELOMA
     Dosage: 0 MILLIGRAM
     Route: 065
     Dates: start: 20180815
  7. POMALYST [Suspect]
     Active Substance: POMALIDOMIDE
     Dosage: 63 MILLIGRAM
     Route: 048
     Dates: start: 20190524
  8. DEXAMETHASONE. [Suspect]
     Active Substance: DEXAMETHASONE
     Dosage: 0 MILLIGRAM
     Route: 065
     Dates: start: 20190524, end: 20190715
  9. MLN9708 [Suspect]
     Active Substance: IXAZOMIB
     Dosage: 12 MILLIGRAM
     Route: 065
     Dates: start: 20190524

REACTIONS (1)
  - Rhinovirus infection [Recovered/Resolved with Sequelae]

NARRATIVE: CASE EVENT DATE: 20190926
